FAERS Safety Report 4629516-X (Version None)
Quarter: 2005Q2

REPORT INFORMATION
  Report Type: 
  Country: None (occurrence: None)
  Receive Date: 20050405
  Receipt Date: 20050324
  Transmission Date: 20051028
  Serious: Yes (Life-Threatening, Hospitalization)
  Sender: FDA-Public Use
  Company Number: 2005029457

PATIENT
  Age: 26 Year
  Sex: Male

DRUGS (3)
  1. DILANTIN KAPSEAL [Suspect]
     Indication: ILL-DEFINED DISORDER
     Dosage: 600 MG (100 MG, 2 IN 1 D), ORAL
     Route: 048
     Dates: start: 20041113
  2. DILANTIN [Suspect]
     Indication: ILL-DEFINED DISORDER
     Dosage: AM ONLY (50 MG, 1 IN 1 D), ORAL
     Route: 048
     Dates: start: 20041113
  3. DILANTIN [Suspect]

REACTIONS (5)
  - ANTICONVULSANT DRUG LEVEL DECREASED [None]
  - CONVULSION [None]
  - IMPAIRED WORK ABILITY [None]
  - PHARMACEUTICAL PRODUCT COMPLAINT [None]
  - PROTEIN TOTAL INCREASED [None]
